FAERS Safety Report 23064490 (Version 1)
Quarter: 2023Q4

REPORT INFORMATION
  Report Type: Spontaneous
  Country: CN (occurrence: None)
  Receive Date: 20231013
  Receipt Date: 20231013
  Transmission Date: 20240110
  Serious: Yes (Hospitalization)
  Sender: FDA-Public Use
  Company Number: 2023A232314

PATIENT
  Sex: Female
  Weight: 57 kg

DRUGS (10)
  1. SEROQUEL [Suspect]
     Active Substance: QUETIAPINE FUMARATE
  2. MIDAZOLAM [Suspect]
     Active Substance: MIDAZOLAM
  3. LORAZEPAM [Suspect]
     Active Substance: LORAZEPAM
     Indication: Sleep disorder
     Route: 048
  4. LORAZEPAM [Suspect]
     Active Substance: LORAZEPAM
     Indication: Fear
     Route: 048
  5. VALIUM [Suspect]
     Active Substance: DIAZEPAM
     Indication: Sleep disorder
  6. REMERON [Suspect]
     Active Substance: MIRTAZAPINE
  7. TRAZODONE HYDROCHLORIDE [Suspect]
     Active Substance: TRAZODONE HYDROCHLORIDE
  8. ZOLPIDEM TARTRATE [Suspect]
     Active Substance: ZOLPIDEM TARTRATE
  9. RISPERDAL [Suspect]
     Active Substance: RISPERIDONE
  10. XANAX [Suspect]
     Active Substance: ALPRAZOLAM

REACTIONS (21)
  - Confusional state [Unknown]
  - Myalgia [Unknown]
  - Dizziness [Unknown]
  - Decreased appetite [Unknown]
  - Anger [Unknown]
  - Aggression [Unknown]
  - Dyspepsia [Unknown]
  - Bladder disorder [Unknown]
  - Headache [Unknown]
  - Bone pain [Unknown]
  - Visual impairment [Unknown]
  - Disorientation [Unknown]
  - Social fear [Unknown]
  - Hypersensitivity [Unknown]
  - Fatigue [Unknown]
  - Asthenia [Unknown]
  - Dyspnoea [Unknown]
  - Suicidal ideation [Unknown]
  - Amnesia [Unknown]
  - Fall [Unknown]
  - Depersonalisation/derealisation disorder [Unknown]
